FAERS Safety Report 23247581 (Version 1)
Quarter: 2023Q4

REPORT INFORMATION
  Report Type: Spontaneous
  Country: US (occurrence: None)
  Receive Date: 20231129
  Receipt Date: 20231129
  Transmission Date: 20240110
  Serious: Yes (Life-Threatening, Hospitalization)
  Sender: FDA-Public Use
  Company Number: None

PATIENT
  Age: 37 Year
  Sex: Male
  Weight: 97 kg

DRUGS (11)
  1. TACROLIMUS [Suspect]
     Active Substance: TACROLIMUS
  2. SIROLIMUS [Suspect]
     Active Substance: SIROLIMUS
  3. MYCOPHENOLATE MOFETIL [Concomitant]
     Active Substance: MYCOPHENOLATE MOFETIL
  4. Filgrastim-sndz injection [Concomitant]
  5. ACYCLOVIR [Concomitant]
     Active Substance: ACYCLOVIR
  6. LETERMOVIR [Concomitant]
     Active Substance: LETERMOVIR
  7. ISAVUCONAZONIUM [Concomitant]
     Active Substance: ISAVUCONAZONIUM
  8. FUROSEMIDE [Concomitant]
     Active Substance: FUROSEMIDE
  9. CEFEPIME [Concomitant]
     Active Substance: CEFEPIME HYDROCHLORIDE
  10. VANCOMYCIN [Concomitant]
     Active Substance: VANCOMYCIN
  11. Enalapirilat [Concomitant]

REACTIONS (14)
  - Acute kidney injury [None]
  - Febrile neutropenia [None]
  - Nausea [None]
  - Vomiting [None]
  - Diarrhoea [None]
  - Drug level above therapeutic [None]
  - Cystitis [None]
  - Staphylococcal infection [None]
  - Therapy cessation [None]
  - Atypical haemolytic uraemic syndrome [None]
  - Scleroderma renal crisis [None]
  - Urine output decreased [None]
  - Blood lactate dehydrogenase increased [None]
  - Haptoglobin decreased [None]

NARRATIVE: CASE EVENT DATE: 20231115
